FAERS Safety Report 20468374 (Version 3)
Quarter: 2024Q3

REPORT INFORMATION
  Report Type: Spontaneous
  Country: NL (occurrence: NL)
  Receive Date: 20220214
  Receipt Date: 20240824
  Transmission Date: 20241017
  Serious: Yes (Disabling, Other)
  Sender: ACCORD
  Company Number: None

PATIENT
  Age: 16 Year
  Sex: Male

DRUGS (3)
  1. OXYBUTYNIN CHLORIDE [Suspect]
     Active Substance: OXYBUTYNIN CHLORIDE
     Indication: Hyperhidrosis
     Dosage: STRENGTH: 5 MG, 3 X 2.5 MG
     Dates: start: 20130927, end: 201309
  2. OXYBUTYNIN CHLORIDE [Suspect]
     Active Substance: OXYBUTYNIN CHLORIDE
     Indication: Hyperhidrosis
     Dosage: INCREASED TO 3 X 5 MG
     Dates: start: 201909, end: 20211116
  3. OXYBUTYNIN CHLORIDE [Suspect]
     Active Substance: OXYBUTYNIN CHLORIDE
     Indication: Hyperhidrosis
     Dosage: 3 X 5 MG
     Dates: start: 2019, end: 202112

REACTIONS (15)
  - Temperature intolerance [Recovering/Resolving]
  - Dry mouth [Recovering/Resolving]
  - Confusional state [Recovering/Resolving]
  - Fluid retention [Recovering/Resolving]
  - Irritability [Recovering/Resolving]
  - Suicidal ideation [Recovering/Resolving]
  - Insomnia [Recovering/Resolving]
  - Anxiety [Recovering/Resolving]
  - Erythema [Recovering/Resolving]
  - Dyspepsia [Recovering/Resolving]
  - Fatigue [Recovering/Resolving]
  - Restlessness [Recovering/Resolving]
  - Off label use [Unknown]
  - Depressed mood [Recovering/Resolving]
  - Skin reaction [Recovering/Resolving]

NARRATIVE: CASE EVENT DATE: 20210101
